FAERS Safety Report 9449347 (Version 1)
Quarter: 2013Q3

REPORT INFORMATION
  Report Type: Spontaneous
  Country: US (occurrence: US)
  Receive Date: 20130808
  Receipt Date: 20130808
  Transmission Date: 20140515
  Serious: No
  Sender: FDA-Public Use
  Company Number: US-009507513-1308USA002401

PATIENT
  Age: 77 Year
  Sex: Female

DRUGS (5)
  1. JANUVIA [Suspect]
     Indication: DIABETES MELLITUS
     Dosage: 500 MG, QD
     Route: 048
     Dates: start: 20130722
  2. ATENOLOL [Concomitant]
  3. PRINIVIL [Concomitant]
  4. ZOCOR [Concomitant]
  5. AMLODIPINE [Concomitant]

REACTIONS (5)
  - Weight decreased [Unknown]
  - Blood glucose increased [Unknown]
  - Decreased appetite [Unknown]
  - Product label confusion [Unknown]
  - Overdose [Unknown]
